FAERS Safety Report 18539401 (Version 3)
Quarter: 2020Q4

REPORT INFORMATION
  Report Type: Report from Study
  Country: BR (occurrence: BR)
  Receive Date: 20201124
  Receipt Date: 20201228
  Transmission Date: 20210114
  Serious: Yes (Death, Hospitalization)
  Sender: FDA-Public Use
  Company Number: BR-AMRYT PHARMACEUTICALS DAC-AEGR005019

PATIENT

DRUGS (12)
  1. METRELEPTIN [Suspect]
     Active Substance: METRELEPTIN
     Dosage: 0.4 MILLILITER, QD
     Route: 058
  2. VITAMIN D [VITAMIN D NOS] [Concomitant]
     Active Substance: VITAMIN D NOS
     Indication: HYPOVITAMINOSIS
     Dosage: 7000 INTERNATIONAL UNIT ONCE A WEEK
     Route: 048
  3. METRELEPTIN [Suspect]
     Active Substance: METRELEPTIN
     Indication: CONGENITAL GENERALISED LIPODYSTROPHY
     Dosage: 0.5 MILLILITER, QD
     Route: 058
     Dates: start: 20190214
  4. ATENOLOL. [Concomitant]
     Active Substance: ATENOLOL
     Indication: HYPERTENSION
     Dosage: 25 MILLIGRAM, BID
     Route: 048
  5. ATENSINA [Concomitant]
     Active Substance: CLONIDINE
     Indication: HYPERTENSION
     Dosage: 0.25 MILLIGRAM, TID
     Route: 048
  6. METRELEPTIN [Suspect]
     Active Substance: METRELEPTIN
     Dosage: 0.3 MILLILITER, QD
     Route: 058
  7. ERYTHROPOIETIN [Concomitant]
     Active Substance: ERYTHROPOIETIN
     Indication: RENAL IMPAIRMENT
     Dosage: TWICE A WEEK
     Route: 058
     Dates: start: 2017
  8. INSULIN [Concomitant]
     Active Substance: INSULIN NOS
     Indication: DIABETES MELLITUS
     Dosage: 10 UNITS NPH, BID
     Route: 058
  9. PURAN [Concomitant]
     Active Substance: LEVOTHYROXINE SODIUM
     Indication: HYPOTHYROIDISM
     Dosage: 50 MICROGRAM, QD
     Route: 048
     Dates: start: 2012
  10. METRELEPTIN [Suspect]
     Active Substance: METRELEPTIN
     Dosage: 0.1 MILLILITER, QD
     Route: 058
     Dates: end: 202003
  11. HYDRALAZINE [Concomitant]
     Active Substance: HYDRALAZINE HYDROCHLORIDE
     Indication: HYPERTENSION
     Dosage: 50 MILLIGRAM, TID
     Route: 048
  12. AMLODIPINE [Concomitant]
     Active Substance: AMLODIPINE BESYLATE
     Indication: HYPERTENSION
     Dosage: 5 MILLIGRAM, QD
     Route: 048

REACTIONS (2)
  - Encephalitis [Fatal]
  - Proteinuria [Fatal]

NARRATIVE: CASE EVENT DATE: 202008
